FAERS Safety Report 15422957 (Version 2)
Quarter: 2018Q4

REPORT INFORMATION
  Report Type: Spontaneous
  Country: US (occurrence: US)
  Receive Date: 20180925
  Receipt Date: 20181002
  Transmission Date: 20190204
  Serious: Yes (Other)
  Sender: FDA-Public Use
  Company Number: US-ASTRAZENECA-2018SF09085

PATIENT
  Age: 27199 Day
  Sex: Male
  Weight: 62.3 kg

DRUGS (7)
  1. NORCO [Concomitant]
     Active Substance: ACETAMINOPHEN\HYDROCODONE BITARTRATE
     Dosage: 5 MG-325 MG, 1-2 TABLETS ORALLY AS NEEDED
     Route: 048
     Dates: start: 20180509
  2. TAGRISSO [Suspect]
     Active Substance: OSIMERTINIB
     Indication: NON-SMALL CELL LUNG CANCER
     Dosage: 80.0MG UNKNOWN
     Route: 048
     Dates: start: 20180701, end: 20180807
  3. TAGRISSO [Suspect]
     Active Substance: OSIMERTINIB
     Indication: NON-SMALL CELL LUNG CANCER
     Dosage: 40.0MG UNKNOWN
     Route: 048
     Dates: start: 20180910
  4. FOLIC ACID. [Concomitant]
     Active Substance: FOLIC ACID
     Dates: start: 20180917
  5. VOLTAREN XR [Concomitant]
     Active Substance: DICLOFENAC SODIUM
     Route: 048
     Dates: start: 20180917
  6. HYDROCORTISONE. [Concomitant]
     Active Substance: HYDROCORTISONE
     Dosage: APPLY TO AFFECTED AREA TWICE DAILY
     Dates: start: 20180509
  7. VITAMIN D3 [Concomitant]
     Active Substance: CHOLECALCIFEROL
     Route: 048
     Dates: start: 20180618

REACTIONS (16)
  - Blood glucose increased [Unknown]
  - Back pain [Unknown]
  - Furuncle [Not Recovered/Not Resolved]
  - Rash [Unknown]
  - Discharge [Not Recovered/Not Resolved]
  - Arthralgia [Unknown]
  - Skin lesion [Recovering/Resolving]
  - Pyrexia [Not Recovered/Not Resolved]
  - Hypoacusis [Unknown]
  - Urine flow decreased [Unknown]
  - Paraesthesia [Unknown]
  - Stomatitis [Unknown]
  - Polyuria [Unknown]
  - Cough [Not Recovered/Not Resolved]
  - Hypoaesthesia [Unknown]
  - Diarrhoea [Unknown]

NARRATIVE: CASE EVENT DATE: 20180801
